FAERS Safety Report 7054728-8 (Version None)
Quarter: 2010Q4

REPORT INFORMATION
  Report Type: 
  Country: None (occurrence: None)
  Receive Date: 20101015
  Receipt Date: 20100928
  Transmission Date: 20110411
  Serious: Yes (Hospitalization)
  Sender: FDA-Public Use
  Company Number: 2010P1001631

PATIENT
  Age: 68 Year
  Sex: Male

DRUGS (9)
  1. WARFARIN SODIUM [Suspect]
     Dosage: PO
     Route: 048
     Dates: start: 20100618
  2. WARFARIN SODIUM [Suspect]
     Dosage: PO
     Route: 048
     Dates: start: 20100618
  3. WARFARIN SODIUM [Suspect]
     Dosage: PO
     Route: 048
     Dates: start: 20100618
  4. PREDNISONE [Concomitant]
  5. IPRATROPIUM BROMIDE AND ALBUTEROL SULFATE [Concomitant]
  6. FUROSEMIDE [Concomitant]
  7. DILTIAZEM CD [Concomitant]
  8. ADVAIR DISKUS 100/50 [Concomitant]
  9. ALBUTEROL [Concomitant]

REACTIONS (1)
  - RASH PRURITIC [None]
